FAERS Safety Report 12325930 (Version 2)
Quarter: 2017Q1

REPORT INFORMATION
  Report Type: Report from Study
  Country: US (occurrence: US)
  Receive Date: 20160503
  Receipt Date: 20170126
  Transmission Date: 20170428
  Serious: Yes (Other)
  Sender: FDA-Public Use
  Company Number: US-AMGEN-USASP2016047934

PATIENT
  Age: 70 Year
  Sex: Female
  Weight: 43.45 kg

DRUGS (3)
  1. PROLIA [Suspect]
     Active Substance: DENOSUMAB
     Indication: OSTEOPOROSIS POSTMENOPAUSAL
     Dosage: 60 MG, UNK
     Route: 058
     Dates: start: 20151020
  2. CALTRATE [Concomitant]
     Active Substance: CALCIUM CARBONATE
     Indication: OSTEOPOROSIS
     Dosage: 600 UNK, QD
     Route: 065
  3. VITAMIN D [Concomitant]
     Active Substance: CHOLECALCIFEROL
     Indication: OSTEOPOROSIS
     Dosage: 2000 UNK, QD
     Route: 065

REACTIONS (6)
  - Heart rate increased [Not Recovered/Not Resolved]
  - Dyspnoea [Unknown]
  - Oxygen saturation abnormal [Unknown]
  - Dizziness [Unknown]
  - Pain in extremity [Unknown]
  - Myalgia [Not Recovered/Not Resolved]

NARRATIVE: CASE EVENT DATE: 201511
